FAERS Safety Report 6948239 (Version 7)
Quarter: 2013Q2

REPORT INFORMATION
  Report Type: Spontaneous
  Country: US (occurrence: US)
  Receive Date: 20090323
  Receipt Date: 20130506
  Transmission Date: 20140414
  Serious: Yes (Hospitalization)
  Sender: FDA-Public Use
  Company Number: US-BIOGENIDEC-2008BI029298

PATIENT
  Age: 37 Year
  Sex: Female
  Weight: 54 kg

DRUGS (1)
  1. TYSABRI [Suspect]
     Indication: CROHN^S DISEASE
     Route: 042
     Dates: start: 20080416, end: 20091202

REACTIONS (18)
  - Crohn^s disease [Recovered/Resolved]
  - Hypotension [Recovered/Resolved]
  - Device related infection [Recovered/Resolved]
  - Staphylococcal sepsis [Recovered/Resolved]
  - Bacterial sepsis [Recovered/Resolved]
  - Gallbladder disorder [Recovered/Resolved]
  - Pyrexia [Recovered/Resolved]
  - Tremor [Recovered/Resolved]
  - Chills [Recovered/Resolved]
  - Pulmonary oedema [Recovered/Resolved]
  - Abdominal pain upper [Not Recovered/Not Resolved]
  - Fungal infection [Recovered/Resolved]
  - Central venous catheterisation [Unknown]
  - Vomiting [Unknown]
  - Weight decreased [Recovered/Resolved]
  - Malaise [Recovered/Resolved]
  - Catheter site pain [Recovered/Resolved]
  - Asthenia [Not Recovered/Not Resolved]
